FAERS Safety Report 7278662-3 (Version None)
Quarter: 2011Q1

REPORT INFORMATION
  Report Type: 
  Country: None (occurrence: None)
  Receive Date: 20110207
  Receipt Date: 20110202
  Transmission Date: 20110831
  Serious: Yes (Other)
  Sender: FDA-Public Use
  Company Number: US-PFIZER INC-2011024343

PATIENT
  Sex: Male
  Weight: 113.38 kg

DRUGS (5)
  1. ACETYLSALICYLIC ACID [Concomitant]
     Dosage: 81 MG, UNK
  2. FISH OIL [Concomitant]
     Dosage: UNK
  3. ADVIL PM [Suspect]
     Indication: HEAD INJURY
     Dosage: UNK
     Route: 048
     Dates: start: 20110101
  4. VITAMIN D [Concomitant]
     Dosage: UNK
  5. MULTI-VITAMINS [Concomitant]
     Dosage: UNK

REACTIONS (6)
  - ERYTHEMA [None]
  - BLISTER [None]
  - RASH MACULAR [None]
  - URTICARIA [None]
  - SWELLING FACE [None]
  - TENDERNESS [None]
